FAERS Safety Report 20542357 (Version 3)
Quarter: 2022Q1

REPORT INFORMATION
  Report Type: Report from Study
  Country: BE (occurrence: BE)
  Receive Date: 20220302
  Receipt Date: 20220317
  Transmission Date: 20220423
  Serious: Yes (Hospitalization)
  Sender: FDA-Public Use
  Company Number: BE-ABBVIE-22K-013-4298863-00

PATIENT
  Sex: Female

DRUGS (14)
  1. CARBIDOPA\LEVODOPA [Suspect]
     Active Substance: CARBIDOPA\LEVODOPA
     Indication: Parkinson^s disease
     Dosage: MD 4.0 ML; CD 2.6 ML/HR DURING 16 HOURS; ED 0.8 ML
     Route: 050
     Dates: start: 20210112, end: 20210324
  2. CARBIDOPA\LEVODOPA [Suspect]
     Active Substance: CARBIDOPA\LEVODOPA
     Dosage: MD 3.5 ML; CD 2.3 ML/HR DURING 16 HOURS; ED 0.8 ML
     Route: 050
     Dates: start: 20210324, end: 20210512
  3. CARBIDOPA\LEVODOPA [Suspect]
     Active Substance: CARBIDOPA\LEVODOPA
     Dosage: CD 2.2 ML/HR DURING 16 HOURS
     Route: 050
     Dates: start: 20210512, end: 20210628
  4. CARBIDOPA\LEVODOPA [Suspect]
     Active Substance: CARBIDOPA\LEVODOPA
     Dosage: MD 3.5 ML; CD 2.0 ML/HR DURING 16 HOURS; ED 0.8 ML
     Route: 050
     Dates: start: 20210628, end: 20210628
  5. CARBIDOPA\LEVODOPA [Suspect]
     Active Substance: CARBIDOPA\LEVODOPA
     Dosage: MD 3.5 ML; CD 1.9 ML/HR DURING 16 HOURS; ED 0.8 ML
     Route: 050
     Dates: start: 20210628
  6. AMLODIPINE BESYLATE [Concomitant]
     Active Substance: AMLODIPINE BESYLATE
     Indication: Product used for unknown indication
  7. D VITAL FORTE [Concomitant]
     Indication: Product used for unknown indication
  8. VENLAFAXINE HYDROCHLORIDE [Concomitant]
     Active Substance: VENLAFAXINE HYDROCHLORIDE
     Indication: Product used for unknown indication
  9. LASIX [Concomitant]
     Active Substance: FUROSEMIDE
     Indication: Product used for unknown indication
  10. BENSERAZIDE\LEVODOPA [Concomitant]
     Active Substance: BENSERAZIDE\LEVODOPA
     Indication: Product used for unknown indication
  11. BENSERAZIDE\LEVODOPA [Concomitant]
     Active Substance: BENSERAZIDE\LEVODOPA
     Indication: Product used for unknown indication
     Dosage: HALF A TABLET
  12. BENSERAZIDE\LEVODOPA [Concomitant]
     Active Substance: BENSERAZIDE\LEVODOPA
     Dosage: A QUARTER TABLET
  13. RIVOTRIL [Concomitant]
     Active Substance: CLONAZEPAM
     Indication: Product used for unknown indication
  14. SEDISTRESS SLEEP [Concomitant]
     Indication: Product used for unknown indication

REACTIONS (2)
  - Device dislocation [Recovered/Resolved]
  - Off label use [Recovered/Resolved]
